FAERS Safety Report 19771327 (Version 4)
Quarter: 2021Q4

REPORT INFORMATION
  Report Type: Spontaneous
  Country: US (occurrence: US)
  Receive Date: 20210831
  Receipt Date: 20211027
  Transmission Date: 20220303
  Serious: Yes (Other)
  Sender: FDA-Public Use
  Company Number: US-ALLERGAN-2130240US

PATIENT
  Sex: Female
  Weight: 68.03 kg

DRUGS (9)
  1. RESTASIS [Suspect]
     Active Substance: CYCLOSPORINE
     Indication: Dry eye
     Dosage: 2 GTT, BID
     Dates: start: 202107, end: 202108
  2. RESTASIS [Suspect]
     Active Substance: CYCLOSPORINE
     Indication: Sjogren^s syndrome
     Dosage: UNK
  3. RESTASIS [Suspect]
     Active Substance: CYCLOSPORINE
     Dosage: UNK
  4. RESTASIS [Suspect]
     Active Substance: CYCLOSPORINE
     Dosage: UNK
  5. PLAQUENIL [Concomitant]
     Active Substance: HYDROXYCHLOROQUINE SULFATE
     Indication: Rheumatoid arthritis
     Dosage: UNK
     Dates: start: 201602
  6. PLAQUENIL [Concomitant]
     Active Substance: HYDROXYCHLOROQUINE SULFATE
     Indication: Sjogren^s syndrome
  7. UNSPECIFIED INGREDIENT [Concomitant]
     Active Substance: UNSPECIFIED INGREDIENT
     Indication: Hormone replacement therapy
     Dosage: UNK
  8. NALTREXONE [Concomitant]
     Active Substance: NALTREXONE
     Indication: Drug use disorder
     Dosage: UNK
  9. NALTREXONE [Concomitant]
     Active Substance: NALTREXONE
     Indication: Alcohol use disorder

REACTIONS (20)
  - Blindness [Unknown]
  - Infection [Not Recovered/Not Resolved]
  - Tooth fracture [Unknown]
  - Fibromyalgia [Not Recovered/Not Resolved]
  - Chronic sinusitis [Not Recovered/Not Resolved]
  - Illness [Unknown]
  - Heart rate increased [Unknown]
  - Gait disturbance [Unknown]
  - Salivary hypersecretion [Unknown]
  - Lip ulceration [Unknown]
  - Arthritis [Not Recovered/Not Resolved]
  - Rheumatic disorder [Not Recovered/Not Resolved]
  - Attention deficit hyperactivity disorder [Not Recovered/Not Resolved]
  - Thyroid disorder [Not Recovered/Not Resolved]
  - Hypertension [Not Recovered/Not Resolved]
  - Rheumatoid arthritis [Not Recovered/Not Resolved]
  - Insomnia [Not Recovered/Not Resolved]
  - Depression [Not Recovered/Not Resolved]
  - Eye discharge [Unknown]
  - Ocular hyperaemia [Not Recovered/Not Resolved]

NARRATIVE: CASE EVENT DATE: 20120101
